FAERS Safety Report 4515274-6 (Version None)
Quarter: 2004Q4

REPORT INFORMATION
  Report Type: 
  Country: None (occurrence: None)
  Receive Date: 20041201
  Receipt Date: 20041112
  Transmission Date: 20050328
  Serious: Yes (Death)
  Sender: FDA-Public Use
  Company Number: JP-JNJFOC-20041104627

PATIENT
  Sex: Female
  Weight: 40 kg

DRUGS (15)
  1. REMICADE [Suspect]
     Route: 042
  2. REMICADE [Suspect]
     Route: 042
  3. REMICADE [Suspect]
     Indication: RHEUMATOID ARTHRITIS
     Route: 042
  4. RHEUMATREX [Suspect]
     Route: 049
  5. RHEUMATREX [Suspect]
     Route: 049
  6. RHEUMATREX [Suspect]
     Indication: RHEUMATOID ARTHRITIS
     Route: 049
  7. KENTAN [Concomitant]
     Indication: RHEUMATOID ARTHRITIS
     Route: 049
  8. PREDONINE [Concomitant]
     Route: 049
  9. PREDONINE [Concomitant]
     Route: 049
  10. PREDONINE [Concomitant]
     Route: 049
  11. MUCOSTA [Concomitant]
     Route: 049
  12. U-PASTA [Concomitant]
     Route: 049
  13. LIVACT [Concomitant]
     Route: 049
  14. TANKARU [Concomitant]
     Route: 049
  15. EPANDO [Concomitant]
     Route: 049

REACTIONS (10)
  - ANOREXIA [None]
  - ASTHENIA [None]
  - BLOOD PRESSURE DECREASED [None]
  - CARDIAC FAILURE [None]
  - CONSTIPATION [None]
  - DEPRESSED LEVEL OF CONSCIOUSNESS [None]
  - DRUG INTERACTION [None]
  - PNEUMOCYSTIS CARINII PNEUMONIA [None]
  - PNEUMONITIS [None]
  - RESPIRATORY FAILURE [None]
